FAERS Safety Report 15279336 (Version 1)
Quarter: 2018Q3

REPORT INFORMATION
  Report Type: Spontaneous
  Country: US (occurrence: US)
  Receive Date: 20180730
  Receipt Date: 20180730
  Transmission Date: 20181010
  Serious: Yes (Life-Threatening, Hospitalization)
  Sender: FDA-Public Use
  Company Number: None

PATIENT
  Age: 59 Year
  Sex: Female
  Weight: 62.2 kg

DRUGS (22)
  1. QUETIAPINE. [Concomitant]
     Active Substance: QUETIAPINE
  2. ALPRAZOLAM. [Concomitant]
     Active Substance: ALPRAZOLAM
  3. BUSPIRONE [Concomitant]
     Active Substance: BUSPIRONE HYDROCHLORIDE
  4. MYRBETRIQ [Concomitant]
     Active Substance: MIRABEGRON
  5. OXCARBAZEPINE. [Concomitant]
     Active Substance: OXCARBAZEPINE
  6. DICYCLOMINE [Concomitant]
     Active Substance: DICYCLOMINE HYDROCHLORIDE
  7. PRAZOSIN. [Concomitant]
     Active Substance: PRAZOSIN
  8. BENZONATATE. [Concomitant]
     Active Substance: BENZONATATE
  9. CIPROFLOXACIN. [Suspect]
     Active Substance: CIPROFLOXACIN
     Indication: INFECTION
     Route: 048
     Dates: start: 20180728, end: 20180728
  10. FLONASE [Concomitant]
     Active Substance: FLUTICASONE PROPIONATE
  11. OMEPRAZOLE. [Concomitant]
     Active Substance: OMEPRAZOLE
  12. CYANOCOBALAMIN. [Concomitant]
     Active Substance: CYANOCOBALAMIN
  13. HYDROXYZINE PAMOATE. [Concomitant]
     Active Substance: HYDROXYZINE PAMOATE
  14. MOVANTIK [Concomitant]
     Active Substance: NALOXEGOL OXALATE
  15. TRAZODONE [Concomitant]
     Active Substance: TRAZODONE HYDROCHLORIDE
  16. LUBIPROSTONE [Concomitant]
     Active Substance: LUBIPROSTONE
  17. PROPRANOLOL [Concomitant]
     Active Substance: PROPRANOLOL HYDROCHLORIDE
  18. FOSAMAX [Concomitant]
     Active Substance: ALENDRONATE SODIUM
  19. DOXEPIN [Concomitant]
     Active Substance: DOXEPIN
  20. ONDANSETRON [Concomitant]
     Active Substance: ONDANSETRON
  21. TOPIRAMATE. [Concomitant]
     Active Substance: TOPIRAMATE
  22. MUTLIVITAMIN [Concomitant]

REACTIONS (1)
  - Anaphylactic reaction [None]

NARRATIVE: CASE EVENT DATE: 20180728
